FAERS Safety Report 11224836 (Version 1)
Quarter: 2015Q2

REPORT INFORMATION
  Report Type: Spontaneous
  Country: IT (occurrence: IT)
  Receive Date: 20150629
  Receipt Date: 20150629
  Transmission Date: 20150821
  Serious: Yes (Other)
  Sender: FDA-Public Use
  Company Number: IT-ROCHE-1599995

PATIENT
  Age: 51 Year
  Sex: Female

DRUGS (5)
  1. PEGASYS [Suspect]
     Active Substance: PEGINTERFERON ALFA-2A
     Indication: CHRONIC HEPATITIS C
     Dosage: PRE-FILLED PEN-0.5 ML(360MCG/ML)PRE-FILLED PEN
     Route: 058
     Dates: start: 20141009
  2. REBETOL [Suspect]
     Active Substance: RIBAVIRIN
     Route: 048
  3. VICTRELIS [Suspect]
     Active Substance: BOCEPREVIR
     Indication: CHRONIC HEPATITIS C
     Dosage: 200 MG-BLISTER PACK (PVC/AL) 336 (4 PACKS OF 84)
     Route: 048
     Dates: start: 20141009, end: 20150110
  4. REBETOL [Suspect]
     Active Substance: RIBAVIRIN
     Indication: CHRONIC HEPATITIS C
     Dosage: 200 MG 140 HARD CAPSULES IN BLISTER PACK
     Route: 048
     Dates: start: 20141009, end: 20150110
  5. PEGASYS [Suspect]
     Active Substance: PEGINTERFERON ALFA-2A
     Route: 058

REACTIONS (4)
  - Neutropenia [Recovering/Resolving]
  - Dermatitis [Recovering/Resolving]
  - Anaemia [Recovering/Resolving]
  - Infection reactivation [Unknown]

NARRATIVE: CASE EVENT DATE: 20141114
